FAERS Safety Report 6153249-4 (Version None)
Quarter: 2009Q2

REPORT INFORMATION
  Report Type: 
  Country: None (occurrence: None)
  Receive Date: 20090413
  Receipt Date: 20090402
  Transmission Date: 20091009
  Serious: Yes (Hospitalization, Other)
  Sender: FDA-Public Use
  Company Number: US-ELI_LILLY_AND_COMPANY-US200904000571

PATIENT
  Sex: Female

DRUGS (5)
  1. FORTEO [Suspect]
     Indication: OSTEOPOROSIS
  2. FORTEO [Suspect]
     Dates: start: 20081201
  3. ANTIBIOTICS [Concomitant]
     Indication: CYSTITIS
  4. PLAVIX [Concomitant]
  5. LIPITOR [Concomitant]
     Indication: BLOOD CHOLESTEROL

REACTIONS (7)
  - ARTHROPATHY [None]
  - CONTUSION [None]
  - FALL [None]
  - FEMUR FRACTURE [None]
  - HIP FRACTURE [None]
  - PAIN [None]
  - SKIN LACERATION [None]
